FAERS Safety Report 16615965 (Version 2)
Quarter: 2019Q3

REPORT INFORMATION
  Report Type: Report from Study
  Country: DO (occurrence: DO)
  Receive Date: 20190723
  Receipt Date: 20190807
  Transmission Date: 20191004
  Serious: Yes (Hospitalization)
  Sender: FDA-Public Use
  Company Number: PHHY2019DO166479

PATIENT
  Sex: Male
  Weight: 32.6 kg

DRUGS (2)
  1. EXJADE [Suspect]
     Active Substance: DEFERASIROX
     Dosage: 1 DF, QD
     Route: 065
  2. EXJADE [Suspect]
     Active Substance: DEFERASIROX
     Indication: SICKLE CELL ANAEMIA
     Dosage: 500 MG, UNK
     Route: 065

REACTIONS (6)
  - Pneumonia [Unknown]
  - Arthralgia [Unknown]
  - Malaise [Unknown]
  - Fatigue [Unknown]
  - Chest pain [Unknown]
  - Pain in extremity [Unknown]
